FAERS Safety Report 8308341-2 (Version None)
Quarter: 2012Q2

REPORT INFORMATION
  Report Type: 
  Country: None (occurrence: None)
  Receive Date: 20120424
  Receipt Date: 20120410
  Transmission Date: 20120825
  Serious: No
  Sender: FDA-Public Use
  Company Number: US-JNJFOC-20120204940

PATIENT
  Sex: Female

DRUGS (2)
  1. INVEGA SUSTENNA [Suspect]
     Dosage: SECOND INITIATION DOSE
     Route: 030
     Dates: start: 20120130
  2. INVEGA SUSTENNA [Suspect]
     Indication: PRODUCT USED FOR UNKNOWN INDICATION
     Route: 030
     Dates: start: 20120206

REACTIONS (3)
  - ACCIDENTAL EXPOSURE [None]
  - UNDERDOSE [None]
  - DEVICE LEAKAGE [None]
